FAERS Safety Report 7077356-7 (Version None)
Quarter: 2010Q4

REPORT INFORMATION
  Report Type: 
  Country: None (occurrence: None)
  Receive Date: 20101029
  Receipt Date: 20101029
  Transmission Date: 20110411
  Serious: Yes (Other)
  Sender: FDA-Public Use
  Company Number: None

PATIENT
  Age: 31 Year
  Sex: Female
  Weight: 85.7298 kg

DRUGS (1)
  1. CRYESYLATE OTIC SOLUTION 25% M- CRESYL ACETATE RECSEI LABORATORIES LLC [Suspect]
     Indication: EAR INFECTION FUNGAL
     Dosage: 6 DROPS 3 TIMES DAILY OTHER
     Route: 050
     Dates: start: 20101022, end: 20101024

REACTIONS (1)
  - CHEMICAL BURN OF SKIN [None]
